FAERS Safety Report 6843583-4 (Version None)
Quarter: 2010Q2

REPORT INFORMATION
  Report Type: 
  Country: None (occurrence: None)
  Receive Date: 20100629
  Receipt Date: 20100420
  Transmission Date: 20101027
  Serious: No
  Sender: FDA-Public Use
  Company Number: US-WYE-H14822110

PATIENT
  Age: 51 Year
  Sex: Female

DRUGS (1)
  1. PRISTIQ [Suspect]
     Dosage: ORAL
     Route: 048

REACTIONS (2)
  - INSOMNIA [None]
  - UNEVALUABLE EVENT [None]
